FAERS Safety Report 19400831 (Version 1)
Quarter: 2021Q2

REPORT INFORMATION
  Report Type: Spontaneous
  Country: US (occurrence: US)
  Receive Date: 20210610
  Receipt Date: 20210610
  Transmission Date: 20210717
  Serious: No
  Sender: FDA-Public Use
  Company Number: US-SA-2021SA182078

PATIENT
  Sex: Male

DRUGS (3)
  1. BASAGLAR [Concomitant]
     Active Substance: INSULIN GLARGINE
     Dosage: 38 UNITS AT NIGHT
     Route: 065
  2. SOLIQUA 100/33 [Suspect]
     Active Substance: INSULIN GLARGINE\LIXISENATIDE
     Dosage: UNK
     Route: 065
     Dates: start: 202105
  3. NOVOLOG [Concomitant]
     Active Substance: INSULIN ASPART
     Dosage: UNK, TID
     Route: 065

REACTIONS (1)
  - Blood glucose decreased [Unknown]
